FAERS Safety Report 24757478 (Version 3)
Quarter: 2025Q4

REPORT INFORMATION
  Report Type: Spontaneous
  Country: US (occurrence: US)
  Receive Date: 20241220
  Receipt Date: 20251230
  Transmission Date: 20260118
  Serious: Yes (Other)
  Sender: MERCK SHARP & DOHME LLC
  Company Number: US-009507513-2409USA005380

PATIENT
  Sex: Female
  Weight: 79.4 kg

DRUGS (24)
  1. WINREVAIR [Suspect]
     Active Substance: SOTATERCEPT-CSRK
     Dates: start: 20240825
  2. WINREVAIR [Suspect]
     Active Substance: SOTATERCEPT-CSRK
  3. WINREVAIR [Suspect]
     Active Substance: SOTATERCEPT-CSRK
  4. WINREVAIR [Suspect]
     Active Substance: SOTATERCEPT-CSRK
  5. TREPROSTINIL SODIUM [Suspect]
     Active Substance: TREPROSTINIL SODIUM
     Indication: Pulmonary arterial hypertension
     Dosage: DOSE DESCRIPTION : 0.049 UG/KG, CONTINUOUS?CONCENTRATION: 1 MG/ML
     Route: 041
     Dates: start: 20210409
  6. TREPROSTINIL SODIUM [Suspect]
     Active Substance: TREPROSTINIL SODIUM
     Indication: Pulmonary arterial hypertension
     Dosage: CONCENTRATION 1.0 MG/ML, CONTINUOUS
     Route: 041
     Dates: start: 20210908
  7. ZOLOFT [Concomitant]
     Active Substance: SERTRALINE HYDROCHLORIDE
  8. LASIX [Concomitant]
     Active Substance: FUROSEMIDE
  9. PFIZER-BIONTECH COVID-19 VACCINE [Concomitant]
     Active Substance: TOZINAMERAN
  10. ALBUTEROL SULFATE [Concomitant]
     Active Substance: ALBUTEROL SULFATE
  11. POTASSIUM CHLORIDE [Concomitant]
     Active Substance: POTASSIUM CHLORIDE
  12. ELIQUIS [Concomitant]
     Active Substance: APIXABAN
  13. OPSUMIT [Concomitant]
     Active Substance: MACITENTAN
  14. OXYGEN [Concomitant]
     Active Substance: OXYGEN
  15. COLCHICINE [Concomitant]
     Active Substance: COLCHICINE
  16. REVATIO [Concomitant]
     Active Substance: SILDENAFIL CITRATE
  17. FOSAMAX [Concomitant]
     Active Substance: ALENDRONATE SODIUM
  18. DIGOXIN [Concomitant]
     Active Substance: DIGOXIN
  19. ONDANSETRON [Concomitant]
     Active Substance: ONDANSETRON
  20. HEPARIN SODIUM [Concomitant]
     Active Substance: HEPARIN SODIUM
  21. SODIUM CHLORIDE [Concomitant]
     Active Substance: SODIUM CHLORIDE
  22. SPIRONOLACTONE [Concomitant]
     Active Substance: SPIRONOLACTONE
  23. LORATADINE [Concomitant]
     Active Substance: LORATADINE
  24. PANTOPRAZOLE SODIUM [Concomitant]
     Active Substance: PANTOPRAZOLE SODIUM

REACTIONS (10)
  - Pneumonia [Recovering/Resolving]
  - Hypersomnia [Unknown]
  - Syncope [Unknown]
  - Feeling abnormal [Recovered/Resolved]
  - Decreased activity [Unknown]
  - Ageusia [Recovered/Resolved]
  - Dysgeusia [Recovered/Resolved]
  - Dehydration [Unknown]
  - Dizziness [Unknown]
  - Weight increased [Unknown]

NARRATIVE: CASE EVENT DATE: 20240101
